FAERS Safety Report 8806251 (Version 1)
Quarter: 2012Q4

REPORT INFORMATION
  Report Type: Spontaneous
  Country: US (occurrence: None)
  Receive Date: 20120919
  Receipt Date: 20120919
  Transmission Date: 20130627
  Serious: No
  Sender: FDA-Public Use
  Company Number: None

PATIENT
  Weight: 70 kg

DRUGS (1)
  1. INTEGRILIN [Suspect]
     Dosage: 140 mcg/min (2 mcg/k
     Route: 042

REACTIONS (3)
  - Hypotension [None]
  - Overdose [None]
  - Medication error [None]
